FAERS Safety Report 5860695-2 (Version None)
Quarter: 2008Q3

REPORT INFORMATION
  Report Type: 
  Country: None (occurrence: None)
  Receive Date: 20080827
  Receipt Date: 20080122
  Transmission Date: 20090109
  Serious: No
  Sender: FDA-Public Use
  Company Number: US-ABBOTT-07P-163-0421446-00

PATIENT
  Sex: Male
  Weight: 127.3 kg

DRUGS (3)
  1. COATED PDS [Suspect]
     Indication: LOW DENSITY LIPOPROTEIN INCREASED
     Route: 048
     Dates: start: 20071020
  2. COATED PDS [Suspect]
     Indication: HIGH DENSITY LIPOPROTEIN DECREASED
  3. FINASTERIDE [Concomitant]
     Indication: ALOPECIA
     Route: 048

REACTIONS (4)
  - DIZZINESS [None]
  - FLUSHING [None]
  - PARAESTHESIA [None]
  - SYNCOPE [None]
